FAERS Safety Report 8164704-X (Version None)
Quarter: 2012Q1

REPORT INFORMATION
  Report Type: 
  Country: None (occurrence: None)
  Receive Date: 20120227
  Receipt Date: 20120213
  Transmission Date: 20120608
  Serious: No
  Sender: FDA-Public Use
  Company Number: US-BIOGENIDEC-2011BI048568

PATIENT
  Age: 57 Year
  Sex: Female

DRUGS (1)
  1. TYSABRI [Suspect]
     Indication: MULTIPLE SCLEROSIS
     Route: 042
     Dates: start: 20110929

REACTIONS (10)
  - COUGH [None]
  - REGURGITATION [None]
  - CHEST PAIN [None]
  - NAUSEA [None]
  - SOMNOLENCE [None]
  - DYSPNOEA [None]
  - SINUSITIS [None]
  - FLUSHING [None]
  - PHOTOPSIA [None]
  - RESPIRATORY TRACT INFECTION [None]
